FAERS Safety Report 23654507 (Version 1)
Quarter: 2024Q1

REPORT INFORMATION
  Report Type: Report from Study
  Country: US (occurrence: US)
  Receive Date: 20240320
  Receipt Date: 20240320
  Transmission Date: 20240410
  Serious: Yes (Hospitalization)
  Sender: FDA-Public Use
  Company Number: US-TAIHOP-2024-002619

PATIENT
  Age: 40 Year
  Sex: Female

DRUGS (1)
  1. LONSURF [Suspect]
     Active Substance: TIPIRACIL HYDROCHLORIDE\TRIFLURIDINE
     Indication: Rectal cancer
     Dosage: CURRENT CYCLE UNKNOWN
     Route: 048
     Dates: start: 202402

REACTIONS (6)
  - Haemoglobin decreased [Unknown]
  - Dizziness [Unknown]
  - Decreased appetite [Unknown]
  - Pyrexia [Unknown]
  - Cytopenia [Unknown]
  - Intentional dose omission [Unknown]
